FAERS Safety Report 15701058 (Version 9)
Quarter: 2019Q3

REPORT INFORMATION
  Report Type: Report from Study
  Country: CA (occurrence: CA)
  Receive Date: 20181207
  Receipt Date: 20190929
  Transmission Date: 20191004
  Serious: Yes (Hospitalization, Other)
  Sender: FDA-Public Use
  Company Number: PHHY2018CA061804

PATIENT
  Age: 61 Year
  Sex: Male

DRUGS (7)
  1. HYDROMORPH [Concomitant]
     Active Substance: HYDROMORPHONE
     Dosage: 3 MG, BID
     Route: 048
  2. OCTREOTIDE. [Suspect]
     Active Substance: OCTREOTIDE
     Indication: PRODUCT USED FOR UNKNOWN INDICATION
     Dosage: 100 MCG/ML, BID ( X 1 WEEK)
     Route: 058
     Dates: start: 20190110
  3. SANDOSTATIN LAR DEPOT [Suspect]
     Active Substance: OCTREOTIDE ACETATE
     Dosage: 30 MG, Q3W (EVERY 3 WEEKS)
     Route: 030
     Dates: start: 20160118
  4. SANDOSTATIN LAR DEPOT [Suspect]
     Active Substance: OCTREOTIDE ACETATE
     Dosage: 30 MG, Q2W
     Route: 030
  5. DEXAMETHASONE. [Concomitant]
     Active Substance: DEXAMETHASONE
     Indication: PRODUCT USED FOR UNKNOWN INDICATION
     Dosage: 2 MG, QID
     Route: 065
  6. SANDOSTATIN LAR DEPOT [Suspect]
     Active Substance: OCTREOTIDE ACETATE
     Indication: CARCINOID TUMOUR
     Dosage: 30 MG, QMO (EVERY FOUR WEEKS)
     Route: 030
     Dates: start: 20160118
  7. HYDROMORPH [Concomitant]
     Active Substance: HYDROMORPHONE
     Indication: PRODUCT USED FOR UNKNOWN INDICATION
     Dosage: 4 MG, Q4H (PRN)
     Route: 048

REACTIONS (24)
  - Hordeolum [Recovering/Resolving]
  - Ear discomfort [Unknown]
  - Somnolence [Unknown]
  - Infection [Unknown]
  - Malaise [Recovering/Resolving]
  - Hot flush [Unknown]
  - Nausea [Not Recovered/Not Resolved]
  - Abdominal distension [Unknown]
  - Asthenia [Not Recovered/Not Resolved]
  - Liver disorder [Unknown]
  - Inappropriate schedule of product administration [Unknown]
  - Confusional state [Unknown]
  - Lower respiratory tract infection [Unknown]
  - Fatigue [Unknown]
  - Oedema peripheral [Unknown]
  - Cholelithiasis [Unknown]
  - Blood pressure increased [Unknown]
  - Tremor [Unknown]
  - Bone neoplasm [Unknown]
  - Vomiting [Unknown]
  - Blood pressure decreased [Unknown]
  - Lung neoplasm [Unknown]
  - Abdominal pain [Not Recovered/Not Resolved]
  - Metastases to liver [Unknown]

NARRATIVE: CASE EVENT DATE: 2018
